FAERS Safety Report 25636400 (Version 1)
Quarter: 2025Q3

REPORT INFORMATION
  Report Type: Spontaneous
  Country: US (occurrence: US)
  Receive Date: 20250803
  Receipt Date: 20250803
  Transmission Date: 20251021
  Serious: Yes (Other)
  Sender: POINTVIEW HOLDINGS LLC
  Company Number: US-Pointview-000008

PATIENT
  Age: 18 Year
  Sex: Male

DRUGS (3)
  1. ADALIMUMAB [Suspect]
     Active Substance: ADALIMUMAB
     Indication: Chorioretinitis
     Route: 058
  2. MYCOPHENOLATE MOFETIL [Suspect]
     Active Substance: MYCOPHENOLATE MOFETIL
     Indication: Chorioretinitis
     Route: 048
  3. PREDNISONE [Suspect]
     Active Substance: PREDNISONE
     Indication: Chorioretinitis
     Route: 048

REACTIONS (1)
  - Oral herpes [Recovered/Resolved]
